FAERS Safety Report 14262790 (Version 2)
Quarter: 2018Q1

REPORT INFORMATION
  Report Type: Spontaneous
  Country: US (occurrence: US)
  Receive Date: 20171208
  Receipt Date: 20180126
  Transmission Date: 20180508
  Serious: Yes (Other)
  Sender: FDA-Public Use
  Company Number: US-NOVOPROD-575694

PATIENT
  Sex: Female
  Weight: 52 kg

DRUGS (5)
  1. LEVEMIR [Suspect]
     Active Substance: INSULIN DETEMIR
     Dosage: 7 U, BID (PEN 2)
     Route: 065
     Dates: start: 201707
  2. NOVOLOG [Concomitant]
     Active Substance: INSULIN ASPART
     Indication: TYPE 1 DIABETES MELLITUS
     Dosage: SLIDING SCALE
     Route: 065
     Dates: start: 1997
  3. LEVEMIR [Suspect]
     Active Substance: INSULIN DETEMIR
     Indication: TYPE 1 DIABETES MELLITUS
     Dosage: 7 U, BID
     Route: 065
     Dates: start: 1997
  4. LEVEMIR [Suspect]
     Active Substance: INSULIN DETEMIR
     Dosage: 8 U, BID
     Route: 065
  5. LEVEMIR [Suspect]
     Active Substance: INSULIN DETEMIR
     Dosage: 7 U, BID (PEN 1)
     Route: 065
     Dates: start: 201707

REACTIONS (7)
  - Blood glucose increased [Not Recovered/Not Resolved]
  - Glycosylated haemoglobin increased [Not Recovered/Not Resolved]
  - Blood glucose decreased [Recovered/Resolved]
  - Eye haemorrhage [Not Recovered/Not Resolved]
  - Device failure [Unknown]
  - Blood glucose decreased [Not Recovered/Not Resolved]
  - Weight increased [Not Recovered/Not Resolved]

NARRATIVE: CASE EVENT DATE: 2017
